FAERS Safety Report 10305152 (Version 1)
Quarter: 2014Q3

REPORT INFORMATION
  Report Type: Spontaneous
  Country: US (occurrence: None)
  Receive Date: 20140711
  Receipt Date: 20140711
  Transmission Date: 20150326
  Serious: Yes (Hospitalization)
  Sender: FDA-Public Use
  Company Number: None

PATIENT
  Age: 57 Year
  Sex: Male
  Weight: 77 kg

DRUGS (2)
  1. LISINOPRIL. [Suspect]
     Active Substance: LISINOPRIL
     Indication: HYPERTENSION
     Route: 048
     Dates: start: 20130313, end: 20140424
  2. LISINOPRIL. [Suspect]
     Active Substance: LISINOPRIL
     Indication: PROSTATITIS
     Route: 048
     Dates: start: 20130313, end: 20140424

REACTIONS (11)
  - Asthenia [None]
  - Dyspnoea [None]
  - Swollen tongue [None]
  - Throat tightness [None]
  - Angioedema [None]
  - Prostatic specific antigen increased [None]
  - Renal failure acute [None]
  - Dizziness [None]
  - Blood pressure decreased [None]
  - Prostatitis [None]
  - Accidental overdose [None]

NARRATIVE: CASE EVENT DATE: 20140416
